FAERS Safety Report 16284658 (Version 1)
Quarter: 2019Q2

REPORT INFORMATION
  Report Type: Spontaneous
  Country: GB (occurrence: GB)
  Receive Date: 20190508
  Receipt Date: 20190508
  Transmission Date: 20190711
  Serious: Yes (Other)
  Sender: FDA-Public Use
  Company Number: GB-ACCORD-126201

PATIENT
  Age: 18 Year
  Sex: Male
  Weight: 79.37 kg

DRUGS (2)
  1. DIAZEPAM. [Concomitant]
     Active Substance: DIAZEPAM
  2. SERTRALINE [Suspect]
     Active Substance: SERTRALINE HYDROCHLORIDE
     Indication: ANXIETY
     Dosage: 50MG
     Route: 048
     Dates: start: 20190302, end: 20190309

REACTIONS (6)
  - Insomnia [Unknown]
  - Paralysis [Recovered/Resolved with Sequelae]
  - Syncope [Unknown]
  - Nausea [Unknown]
  - Tremor [Unknown]
  - Dyspnoea [Unknown]

NARRATIVE: CASE EVENT DATE: 20190309
